FAERS Safety Report 25624425 (Version 5)
Quarter: 2025Q3

REPORT INFORMATION
  Report Type: Report from Study
  Country: CA (occurrence: CA)
  Receive Date: 20250730
  Receipt Date: 20250925
  Transmission Date: 20251021
  Serious: Yes (Hospitalization)
  Sender: ALEXION PHARMACEUTICALS
  Company Number: CA-AstraZeneca-CH-00917934A

PATIENT
  Sex: Female

DRUGS (6)
  1. ULTOMIRIS [Suspect]
     Active Substance: RAVULIZUMAB-CWVZ
     Indication: Atypical haemolytic uraemic syndrome
     Dosage: 900 MILLIGRAM, QW
     Dates: start: 20240404
  2. ULTOMIRIS [Suspect]
     Active Substance: RAVULIZUMAB-CWVZ
     Dosage: 1200 MILLIGRAM, Q2W
     Dates: start: 20240404
  3. ULTOMIRIS [Suspect]
     Active Substance: RAVULIZUMAB-CWVZ
  4. ULTOMIRIS [Suspect]
     Active Substance: RAVULIZUMAB-CWVZ
     Dosage: 2700 MILLIGRAM, QW
     Route: 065
     Dates: start: 20250523
  5. ULTOMIRIS [Suspect]
     Active Substance: RAVULIZUMAB-CWVZ
     Route: 065
  6. BETAHISTINE [Concomitant]
     Active Substance: BETAHISTINE
     Route: 065

REACTIONS (2)
  - Haematological infection [Unknown]
  - Urinary tract infection [Unknown]
